FAERS Safety Report 11885674 (Version 1)
Quarter: 2016Q1

REPORT INFORMATION
  Report Type: Spontaneous
  Country: DE (occurrence: DE)
  Receive Date: 20160104
  Receipt Date: 20160104
  Transmission Date: 20160526
  Serious: Yes (Other)
  Sender: FDA-Public Use
  Company Number: DE-JUBILANT CADISTA PHARMACEUTICALS-2015JUB00438

PATIENT

DRUGS (5)
  1. MYCOPHENOLATE MOFETIL. [Suspect]
     Active Substance: MYCOPHENOLATE MOFETIL
     Dosage: 600 MG/M2, ADMINISTERED IN TWO DOSES
  2. MYCOPHENOLATE MOFETIL. [Suspect]
     Active Substance: MYCOPHENOLATE MOFETIL
     Indication: IMMUNOSUPPRESSION
     Dosage: 1200 MG/M2, ADMINISTERED IN 2 DAILY DOSES
     Route: 065
  3. CYCLOSPORINE OR TACROLIMUS [Concomitant]
     Indication: IMMUNOSUPPRESSION
  4. METHYLPREDNISOLONE. [Concomitant]
     Active Substance: METHYLPREDNISOLONE
     Dosage: 300 MG/M2, UNK
     Route: 042
  5. STEROIDS [Concomitant]
     Active Substance: UNSPECIFIED INGREDIENT
     Indication: IMMUNOSUPPRESSION

REACTIONS (1)
  - Rhabdomyosarcoma [Recovered/Resolved]
